FAERS Safety Report 9467595 (Version 1)
Quarter: 2013Q3

REPORT INFORMATION
  Report Type: Spontaneous
  Country: US (occurrence: US)
  Receive Date: 20130821
  Receipt Date: 20130821
  Transmission Date: 20140515
  Serious: No
  Sender: FDA-Public Use
  Company Number: US-MYLANLABS-2012S1021060

PATIENT
  Age: 62 Year
  Sex: Female

DRUGS (3)
  1. LISINOPRIL TABLETS, USP [Suspect]
     Indication: BLOOD PRESSURE
     Dosage: 1 TABLET IN THE AM AND 1 TABLET IN THE PM
     Route: 048
     Dates: start: 201204
  2. LISINOPRIL TABLETS, USP [Suspect]
     Indication: BLOOD PRESSURE
     Dosage: 1 TABLET IN THE AM AND 1 TABLET IN THE PM
     Route: 048
     Dates: start: 201204
  3. ZYRTEC [Concomitant]

REACTIONS (3)
  - Erythema [Not Recovered/Not Resolved]
  - Swelling face [Not Recovered/Not Resolved]
  - Skin exfoliation [Not Recovered/Not Resolved]
